FAERS Safety Report 6233758-X (Version None)
Quarter: 2009Q2

REPORT INFORMATION
  Report Type: 
  Country: None (occurrence: None)
  Receive Date: 20090616
  Receipt Date: 20090616
  Transmission Date: 20091009
  Serious: Yes (Other)
  Sender: FDA-Public Use
  Company Number: None

PATIENT
  Age: 37 Year
  Sex: Female
  Weight: 56.6996 kg

DRUGS (1)
  1. ARAVA [Suspect]
     Indication: RHEUMATOID ARTHRITIS
     Dosage: 10MG 1 DAILY PO
     Route: 048
     Dates: start: 20090201, end: 20090301

REACTIONS (5)
  - ALOPECIA [None]
  - BLISTER [None]
  - HAEMORRHAGE [None]
  - PRURITUS [None]
  - RASH [None]
